FAERS Safety Report 5647537-5 (Version None)
Quarter: 2008Q1

REPORT INFORMATION
  Report Type: 
  Country: None (occurrence: None)
  Receive Date: 20080131
  Receipt Date: 20071003
  Transmission Date: 20080703
  Serious: No
  Sender: FDA-Public Use
  Company Number: 163-21880-07100214

PATIENT
  Sex: Female

DRUGS (1)
  1. REVLIMID [Suspect]
     Indication: MULTIPLE MYELOMA
     Dosage: 25 MG, DAILY, ORAL ; 2.5 MG, 2 IN 1 D, ORAL
     Route: 048

REACTIONS (5)
  - DIARRHOEA [None]
  - MUSCLE SPASMS [None]
  - RASH PRURITIC [None]
  - SKIN DISORDER [None]
  - STOMATITIS [None]
